FAERS Safety Report 8605777-7 (Version None)
Quarter: 2012Q3

REPORT INFORMATION
  Report Type: 
  Country: None (occurrence: None)
  Receive Date: 20120820
  Receipt Date: 20120814
  Transmission Date: 20120928
  Serious: No
  Sender: FDA-Public Use
  Company Number: US-PFIZER INC-2012079492

PATIENT
  Age: 44 Year
  Sex: Female
  Weight: 78.005 kg

DRUGS (4)
  1. ADVIL [Concomitant]
     Dosage: UNK
  2. MULTI-VITAMINS [Concomitant]
     Dosage: UNK
  3. LYBREL [Suspect]
     Dosage: 90/20 UG, 1X/DAY
     Route: 048
     Dates: start: 20120101, end: 20120507
  4. CALCIUM [Concomitant]
     Dosage: UNK

REACTIONS (5)
  - DIZZINESS [None]
  - METRORRHAGIA [None]
  - WEIGHT INCREASED [None]
  - MENORRHAGIA [None]
  - INCREASED APPETITE [None]
